FAERS Safety Report 8053482-0 (Version None)
Quarter: 2012Q1

REPORT INFORMATION
  Report Type: 
  Country: None (occurrence: None)
  Receive Date: 20120118
  Receipt Date: 20120113
  Transmission Date: 20120608
  Serious: Yes (Hospitalization)
  Sender: FDA-Public Use
  Company Number: FR-PFIZER INC-2012010057

PATIENT
  Age: 49 Year
  Sex: Male

DRUGS (9)
  1. GAVISCON [Concomitant]
     Dosage: 1 DF, 3X/DAY
     Route: 048
  2. NOVORAPID [Concomitant]
     Dosage: 57 IU, 1X/DAY
     Route: 058
  3. ATORVASTATIN CALCIUM [Concomitant]
     Dosage: 10 MG, 1X/DAY
     Route: 048
  4. OFLOXACIN [Suspect]
     Dosage: 200 MG, 2X/DAY
     Route: 048
     Dates: start: 20110517, end: 20110605
  5. LOVENOX [Suspect]
     Dosage: 4000 IU, 1X/DAY
     Route: 058
     Dates: start: 20110505, end: 20110601
  6. LANTUS [Concomitant]
     Dosage: 35 IU, 1X/DAY
     Route: 058
  7. ASPIRIN [Concomitant]
     Dosage: 75 MG, 1X/DAY
     Route: 048
  8. TARGOCID [Suspect]
     Dosage: 450 MG, 3X/DAY
     Route: 042
     Dates: start: 20110517, end: 20110605
  9. PIPERACILLIN AND TAZOBACTAM [Suspect]
     Dosage: 4 G, 3X/DAY
     Route: 042
     Dates: start: 20110517, end: 20110605

REACTIONS (2)
  - DRUG RASH WITH EOSINOPHILIA AND SYSTEMIC SYMPTOMS [None]
  - SKIN TEST NEGATIVE [None]
